FAERS Safety Report 19670821 (Version 1)
Quarter: 2021Q3

REPORT INFORMATION
  Report Type: Spontaneous
  Country: US (occurrence: US)
  Receive Date: 20210806
  Receipt Date: 20210806
  Transmission Date: 20211014
  Serious: Yes (Other)
  Sender: FDA-Public Use
  Company Number: US-ELI_LILLY_AND_COMPANY-US202107012666

PATIENT
  Sex: Male

DRUGS (2)
  1. HUMULIN R U?500 [Suspect]
     Active Substance: INSULIN HUMAN
     Dosage: 110 U, TID
     Route: 058
  2. BUMETANIDE. [Suspect]
     Active Substance: BUMETANIDE
     Indication: PERIPHERAL SWELLING
     Dosage: UNK UNK, UNKNOWN
     Route: 065

REACTIONS (7)
  - Eye disorder [Unknown]
  - Peripheral swelling [Unknown]
  - Visual impairment [Unknown]
  - Nerve injury [Unknown]
  - Renal disorder [Unknown]
  - Limb discomfort [Unknown]
  - Neuralgia [Unknown]
